FAERS Safety Report 4956803-8 (Version None)
Quarter: 2006Q1

REPORT INFORMATION
  Report Type: 
  Country: None (occurrence: None)
  Receive Date: 20060323
  Receipt Date: 20060314
  Transmission Date: 20060701
  Serious: Yes (Hospitalization)
  Sender: FDA-Public Use
  Company Number: 2006-03-0868

PATIENT
  Age: 51 Year
  Sex: Male

DRUGS (3)
  1. VIRAFERONPEG [Suspect]
     Indication: HEPATITIS C
     Dosage: 100 UG QWK SUBCUTANEOUS
     Route: 058
     Dates: start: 20050314
  2. REBETOL [Suspect]
     Indication: HEPATITIS C
     Dosage: 800 MG QD ORAL
     Route: 048
     Dates: start: 20050314
  3. NEORECORMON (EPOETINE BETA) INJECTABLE SOLUTION [Suspect]
     Dosage: 30000 IU QWK SUBCUTANEOU
     Route: 058
     Dates: start: 20050314

REACTIONS (10)
  - CUTANEOUS VASCULITIS [None]
  - ECZEMA [None]
  - HAEMOGLOBIN DECREASED [None]
  - LABORATORY TEST ABNORMAL [None]
  - PLATELET COUNT DECREASED [None]
  - RASH ERYTHEMATOUS [None]
  - RASH PRURITIC [None]
  - RASH PUSTULAR [None]
  - VASCULAR PURPURA [None]
  - WHITE BLOOD CELL COUNT DECREASED [None]
